FAERS Safety Report 11792663 (Version 1)
Quarter: 2015Q4

REPORT INFORMATION
  Report Type: Spontaneous
  Country: US (occurrence: None)
  Receive Date: 20151130
  Receipt Date: 20151130
  Transmission Date: 20160305
  Serious: No
  Sender: FDA-Public Use
  Company Number: None

PATIENT
  Age: 52 Year
  Sex: Female

DRUGS (1)
  1. HUMIRA [Suspect]
     Active Substance: ADALIMUMAB
     Indication: CROHN^S DISEASE
     Dosage: 40MG EVERY OTHER WEEK  SUBQ
     Route: 058

REACTIONS (4)
  - Swelling [None]
  - Cholelithiasis [None]
  - Intestinal operation [None]
  - Pancreatic disorder [None]

NARRATIVE: CASE EVENT DATE: 20150601
